FAERS Safety Report 5664551-4 (Version None)
Quarter: 2008Q1

REPORT INFORMATION
  Report Type: 
  Country: None (occurrence: None)
  Receive Date: 20080314
  Receipt Date: 20080307
  Transmission Date: 20080703
  Serious: Yes (Other)
  Sender: FDA-Public Use
  Company Number: US-JNJFOC-20080301182

PATIENT
  Sex: Male

DRUGS (7)
  1. TYLENOL [Suspect]
     Indication: INFLUENZA
  2. ALKA-SELTZER [Suspect]
     Indication: INFLUENZA
  3. ALKA-SELTZER [Suspect]
     Indication: NASOPHARYNGITIS
  4. THERAFLU [Suspect]
     Indication: INFLUENZA
  5. THERAFLU [Suspect]
     Indication: NASOPHARYNGITIS
  6. NYQUIL [Suspect]
     Indication: INFLUENZA
  7. NYQUIL [Suspect]
     Indication: NASOPHARYNGITIS

REACTIONS (6)
  - ASTHENIA [None]
  - EPISTAXIS [None]
  - FATIGUE [None]
  - FEELING ABNORMAL [None]
  - HAEMOPTYSIS [None]
  - NERVOUSNESS [None]
